FAERS Safety Report 17670523 (Version 3)
Quarter: 2020Q2

REPORT INFORMATION
  Report Type: Report from Study
  Country: GB (occurrence: GB)
  Receive Date: 20200415
  Receipt Date: 20200513
  Transmission Date: 20200713
  Serious: Yes (Other)
  Sender: FDA-Public Use
  Company Number: NVSC2020GB100704

PATIENT
  Age: 21 Year
  Sex: Female

DRUGS (1)
  1. COSENTYX [Suspect]
     Active Substance: SECUKINUMAB
     Indication: PSORIASIS
     Dosage: 300 MG, UNKNOWN (LOADING DOSE)
     Route: 058
     Dates: start: 20200224

REACTIONS (6)
  - Chest discomfort [Recovering/Resolving]
  - Respiration abnormal [Recovering/Resolving]
  - Contusion [Recovering/Resolving]
  - Pyrexia [Recovering/Resolving]
  - Coronavirus infection [Recovering/Resolving]
  - Heart rate increased [Recovering/Resolving]

NARRATIVE: CASE EVENT DATE: 20200408
